FAERS Safety Report 9315153 (Version 1)
Quarter: 2013Q2

REPORT INFORMATION
  Report Type: Spontaneous
  Country: US (occurrence: US)
  Receive Date: 20130529
  Receipt Date: 20130529
  Transmission Date: 20140414
  Serious: No
  Sender: FDA-Public Use
  Company Number: US-ALLERGAN-1215703US

PATIENT
  Sex: Female

DRUGS (2)
  1. ZYMAXID [Suspect]
     Indication: POSTOPERATIVE CARE
     Dosage: UNK
     Route: 047
     Dates: start: 20121029
  2. IMITREX [Concomitant]
     Indication: MIGRAINE
     Dosage: A COUPLE TIMES PER WEEL
     Route: 048

REACTIONS (2)
  - Chest pain [Unknown]
  - Off label use [Unknown]
